FAERS Safety Report 4538025-8 (Version None)
Quarter: 2004Q4

REPORT INFORMATION
  Report Type: 
  Country: None (occurrence: None)
  Receive Date: 20041226
  Receipt Date: 20041217
  Transmission Date: 20050328
  Serious: Yes (Other)
  Sender: FDA-Public Use
  Company Number: ES-ABBOTT-04P-144-0283952-00

PATIENT
  Age: 35 Year
  Sex: Female

DRUGS (3)
  1. KALETRA [Suspect]
     Indication: HIV INFECTION
     Route: 048
     Dates: start: 20040101, end: 20040101
  2. ZIDOVUDINE [Suspect]
     Indication: HIV INFECTION
     Route: 048
     Dates: start: 20040101, end: 20040101
  3. DIDANOSINE [Suspect]
     Indication: HIV INFECTION
     Route: 048
     Dates: start: 20040101, end: 20040101

REACTIONS (3)
  - ARTHRALGIA [None]
  - ERYTHEMA NODOSUM [None]
  - PYREXIA [None]
